FAERS Safety Report 9276535 (Version 1)
Quarter: 2013Q2

REPORT INFORMATION
  Report Type: Spontaneous
  Country: IT (occurrence: IT)
  Receive Date: 20130507
  Receipt Date: 20130507
  Transmission Date: 20140414
  Serious: Yes (Hospitalization)
  Sender: FDA-Public Use
  Company Number: IT-TEVA-402502ISR

PATIENT
  Age: 70 Year
  Sex: Female

DRUGS (2)
  1. AMOXICILLIN [Suspect]
     Dosage: 1 GRAM DAILY;
     Route: 048
     Dates: start: 20130415, end: 20130416
  2. PARACETAMOLO [Concomitant]
     Dates: start: 20130314, end: 20130315

REACTIONS (3)
  - Anaphylactic shock [Recovered/Resolved]
  - Pulmonary sepsis [Recovered/Resolved]
  - Syncope [Recovered/Resolved]
